FAERS Safety Report 4285701-0 (Version None)
Quarter: 2004Q1

REPORT INFORMATION
  Report Type: 
  Country: None (occurrence: None)
  Receive Date: 20040203
  Receipt Date: 20040120
  Transmission Date: 20041129
  Serious: No
  Sender: FDA-Public Use
  Company Number: FABR-10448

PATIENT
  Age: 36 Year
  Sex: Male
  Weight: 91 kg

DRUGS (4)
  1. FABRAZYME [Suspect]
     Indication: FABRY'S DISEASE
     Dosage: 1 MG/KG Q2WKS IV
     Route: 042
     Dates: start: 20030212
  2. FABRAZYME [Suspect]
  3. TRITACE [Concomitant]
  4. PRAVASTATIN (PROVACHOL) [Concomitant]

REACTIONS (4)
  - BLOOD CREATININE INCREASED [None]
  - BLOOD UREA INCREASED [None]
  - PHLEBOTHROMBOSIS [None]
  - VASOCONSTRICTION [None]
